FAERS Safety Report 6349901-8 (Version None)
Quarter: 2009Q3

REPORT INFORMATION
  Report Type: 
  Country: None (occurrence: None)
  Receive Date: 20090911
  Receipt Date: 20090622
  Transmission Date: 20100115
  Serious: No
  Sender: FDA-Public Use
  Company Number: US-ABBOTT-06P-163-0344067-00

PATIENT
  Weight: 88.984 kg

DRUGS (7)
  1. HUMIRA [Suspect]
     Indication: PSORIASIS
     Route: 058
     Dates: start: 20060824, end: 20060914
  2. HUMIRA [Suspect]
     Indication: ARTHRITIS
     Route: 058
     Dates: start: 20060914
  3. SERTRALINE HYDROCHLORIDE [Concomitant]
     Indication: NERVOUSNESS
     Route: 048
  4. FOLIC ACID [Concomitant]
     Indication: VITAMIN SUPPLEMENTATION
     Route: 048
  5. ALBUTEROL [Concomitant]
     Indication: SARCOIDOSIS
     Route: 055
  6. PANADEINE CO [Concomitant]
     Indication: PAIN
     Route: 048
  7. SULINDAC [Concomitant]
     Indication: DRUG USE FOR UNKNOWN INDICATION
     Route: 048

REACTIONS (2)
  - INCORRECT DOSE ADMINISTERED [None]
  - WRONG TECHNIQUE IN DRUG USAGE PROCESS [None]
